FAERS Safety Report 20143736 (Version 1)
Quarter: 2021Q4

REPORT INFORMATION
  Report Type: Spontaneous
  Country: DE (occurrence: DE)
  Receive Date: 20211203
  Receipt Date: 20211203
  Transmission Date: 20220303
  Serious: Yes (Other)
  Sender: FDA-Public Use
  Company Number: None

PATIENT
  Age: 77 Year
  Sex: Male
  Weight: 86 kg

DRUGS (6)
  1. FLUTICASONE PROPIONATE\SALMETEROL XINAFOATE [Suspect]
     Active Substance: FLUTICASONE PROPIONATE\SALMETEROL XINAFOATE
     Indication: Lower respiratory tract infection
     Dosage: UNK
     Route: 065
     Dates: start: 20211101, end: 20211121
  2. FLUTICASONE PROPIONATE\SALMETEROL XINAFOATE [Suspect]
     Active Substance: FLUTICASONE PROPIONATE\SALMETEROL XINAFOATE
     Indication: Pharyngeal inflammation
  3. AMOXICILLIN\CLAVULANATE POTASSIUM [Suspect]
     Active Substance: AMOXICILLIN\CLAVULANATE POTASSIUM
     Indication: Lower respiratory tract infection
     Dosage: UNK (875/125)
     Route: 048
     Dates: start: 20211101, end: 20211121
  4. AMOXICILLIN\CLAVULANATE POTASSIUM [Suspect]
     Active Substance: AMOXICILLIN\CLAVULANATE POTASSIUM
     Indication: Pharyngeal inflammation
  5. ACETYLCYSTEINE [Suspect]
     Active Substance: ACETYLCYSTEINE
     Indication: Pharyngeal inflammation
     Dosage: UNK
     Route: 065
     Dates: start: 20211101, end: 20211121
  6. ACETYLCYSTEINE [Suspect]
     Active Substance: ACETYLCYSTEINE
     Indication: Lower respiratory tract infection

REACTIONS (3)
  - Genital haemorrhage [Unknown]
  - Phimosis [Unknown]
  - Genital erythema [Unknown]

NARRATIVE: CASE EVENT DATE: 20211116
